FAERS Safety Report 15785384 (Version 1)
Quarter: 2019Q1

REPORT INFORMATION
  Report Type: Spontaneous
  Country: FR (occurrence: FR)
  Receive Date: 20190103
  Receipt Date: 20190103
  Transmission Date: 20190417
  Serious: Yes (Hospitalization)
  Sender: FDA-Public Use
  Company Number: FR-TEVA-2018-FR-993768

PATIENT
  Age: 84 Year
  Sex: Male
  Weight: 78.2 kg

DRUGS (11)
  1. SPIRIVA [Concomitant]
     Active Substance: TIOTROPIUM BROMIDE MONOHYDRATE
  2. DIFFU K, G?LULE [Concomitant]
     Active Substance: POTASSIUM CHLORIDE
  3. LASILIX 40 MG, COMPRIM? S?CABLE [Concomitant]
     Active Substance: FUROSEMIDE
  4. PREVISCAN 20 MG, COMPRIM? S?CABLE [Suspect]
     Active Substance: FLUINDIONE
     Indication: ATRIAL FIBRILLATION
     Dosage: 15MG EVEN DAYS, 20MG ODD DAYS
     Route: 048
     Dates: start: 201404
  5. PLAVIX [Suspect]
     Active Substance: CLOPIDOGREL BISULFATE
     Indication: ATRIAL FIBRILLATION
     Dosage: 75 MILLIGRAM DAILY;
     Route: 048
     Dates: start: 201403, end: 20181020
  6. LANTUS [Concomitant]
     Active Substance: INSULIN GLARGINE
  7. HEMIGOXINE NATIVELLE 0,125 MG, COMPRIM? [Concomitant]
     Active Substance: DIGOXIN
  8. METFORMINE [Concomitant]
     Active Substance: METFORMIN HYDROCHLORIDE
  9. TAMSULOSINE [Concomitant]
     Active Substance: TAMSULOSIN HYDROCHLORIDE
     Dosage: .4 MILLIGRAM DAILY;
  10. METFORMINE [Suspect]
     Active Substance: METFORMIN HYDROCHLORIDE
     Route: 065
  11. BISOPROLOL (FUMARATE DE) [Concomitant]
     Active Substance: BISOPROLOL FUMARATE

REACTIONS (2)
  - Acute coronary syndrome [Recovered/Resolved]
  - Hypochromic anaemia [Recovering/Resolving]

NARRATIVE: CASE EVENT DATE: 20181019
